FAERS Safety Report 8280157-5 (Version None)
Quarter: 2012Q2

REPORT INFORMATION
  Report Type: 
  Country: None (occurrence: None)
  Receive Date: 20120412
  Receipt Date: 20120410
  Transmission Date: 20120825
  Serious: Yes (Death, Hospitalization, Disabling)
  Sender: FDA-Public Use
  Company Number: US-MERCK-1201USA02846

PATIENT
  Age: 51 Year
  Sex: Male

DRUGS (8)
  1. BACTRIM DS [Concomitant]
     Route: 065
  2. DIACETYLMORPHINE [Concomitant]
     Route: 042
  3. PREVACID [Concomitant]
     Route: 065
  4. LACTULOSE [Concomitant]
     Route: 065
  5. ALDACTONE [Concomitant]
     Route: 065
  6. TRUVADA [Concomitant]
     Route: 065
  7. ISENTRESS [Suspect]
     Indication: HIV INFECTION
     Route: 048
     Dates: start: 20110118, end: 20120118
  8. TESTIM [Concomitant]
     Route: 065

REACTIONS (12)
  - ACUTE HEPATIC FAILURE [None]
  - ORAL MUCOSAL ERYTHEMA [None]
  - LARYNGITIS [None]
  - SWOLLEN TONGUE [None]
  - MOUTH ULCERATION [None]
  - RASH MACULO-PAPULAR [None]
  - ENDOCARDITIS STAPHYLOCOCCAL [None]
  - BLISTER [None]
  - RASH [None]
  - MUCOSAL INFLAMMATION [None]
  - DISCOMFORT [None]
  - ORAL DISORDER [None]
